FAERS Safety Report 23854629 (Version 1)
Quarter: 2024Q2

REPORT INFORMATION
  Report Type: Spontaneous
  Country: IT (occurrence: IT)
  Receive Date: 20240514
  Receipt Date: 20240514
  Transmission Date: 20240716
  Serious: Yes (Other)
  Sender: FDA-Public Use
  Company Number: IT-STADA-01237583

PATIENT
  Age: 9 Year
  Sex: Male

DRUGS (3)
  1. CARBAMAZEPINE [Suspect]
     Active Substance: CARBAMAZEPINE
     Indication: Seizure
     Dosage: UNK
     Route: 065
  2. INTERFERON BETA-1A [Suspect]
     Active Substance: INTERFERON BETA-1A
     Indication: Radiologically isolated syndrome
     Dosage: 44 UG, THREE TIMES WEEKLY.
     Route: 058
  3. METHYLPREDNISOLONE [Concomitant]
     Active Substance: METHYLPREDNISOLONE
     Indication: Radiologically isolated syndrome
     Dosage: 20 MG/KG
     Route: 042

REACTIONS (5)
  - Pain [Unknown]
  - Rebound effect [Unknown]
  - Psychomotor hyperactivity [Unknown]
  - Seizure [Unknown]
  - Pyrexia [Unknown]
